FAERS Safety Report 8176882-7 (Version None)
Quarter: 2012Q1

REPORT INFORMATION
  Report Type: 
  Country: None (occurrence: None)
  Receive Date: 20120301
  Receipt Date: 20120228
  Transmission Date: 20120608
  Serious: Yes (Hospitalization)
  Sender: FDA-Public Use
  Company Number: KR-BAYER-2011-033600

PATIENT
  Age: 52 Year
  Sex: Male
  Weight: 64 kg

DRUGS (44)
  1. METOCLOPRAMIDE [Concomitant]
     Indication: ABDOMINAL PAIN
     Dosage: 10 MG, QD
     Route: 042
     Dates: start: 20110202, end: 20110202
  2. MAGNESIUM OXIDE [Concomitant]
     Dosage: 500 MG, TID
     Route: 048
     Dates: start: 20110223, end: 20110316
  3. TRIDOL [Concomitant]
     Indication: ABDOMINAL PAIN
     Dosage: 50 MG, QD
     Route: 030
     Dates: start: 20110209, end: 20110209
  4. TRIDOL [Concomitant]
     Dosage: 50 MG, QD
     Route: 042
     Dates: start: 20110418
  5. SMECTA [SMECTITE] [Concomitant]
     Indication: DIARRHOEA
     Dosage: 20 ML, TID
     Route: 048
     Dates: start: 20110223, end: 20110223
  6. EUPATILIN [Concomitant]
     Dosage: 60 MG, QD
     Route: 048
     Dates: start: 20110202
  7. ALBUMIN (HUMAN) [Concomitant]
     Dosage: 100 ML, QD
     Route: 042
     Dates: start: 20110330
  8. METOCLOPRAMIDE [Concomitant]
     Dosage: 10 MG, QD
     Route: 042
     Dates: start: 20110417, end: 20110417
  9. OXYCODONE HCL [Concomitant]
     Indication: ABDOMINAL PAIN
     Dosage: 5 MG, TID
     Route: 048
     Dates: start: 20110207
  10. URSACOL [Concomitant]
     Indication: ASPARTATE AMINOTRANSFERASE INCREASED
     Dosage: 100 MG, TID
     Route: 048
     Dates: start: 20110208
  11. BARACLUDE [Concomitant]
     Indication: HEPATITIS
     Dosage: 0.5 MG, BID
     Route: 048
     Dates: start: 20110209, end: 20110214
  12. DUAC [Concomitant]
     Indication: DERMATITIS ACNEIFORM
     Dosage: 25 G, PRN
     Route: 061
     Dates: start: 20110309
  13. TANTUM [Concomitant]
     Dosage: 100 ML, PRN
     Dates: start: 20110316
  14. TRIDOL [Concomitant]
     Dosage: 50 MG, QD
     Route: 042
     Dates: start: 20110213, end: 20110213
  15. CELEBREX [Concomitant]
     Dosage: 200 MG, BID
     Route: 048
     Dates: start: 20110209, end: 20110209
  16. SUPRAX [Concomitant]
     Indication: ABDOMINAL PAIN
     Dosage: 100 MG, BID
     Route: 048
     Dates: start: 20110214, end: 20110218
  17. ALPRAZOLAM [Concomitant]
     Dosage: 0.25 MG, QD
     Route: 048
     Dates: start: 20110223
  18. ZOLPIDEM [Concomitant]
     Indication: INSOMNIA
     Dosage: 6.25 MG, PRN
     Route: 048
     Dates: start: 20110316, end: 20110329
  19. SCOPOLAMINE [Concomitant]
     Indication: ABDOMINAL PAIN
     Dosage: 40 MG, QD
     Route: 042
     Dates: start: 20110210, end: 20110210
  20. ADVANTAN [Concomitant]
     Indication: DERMATITIS ACNEIFORM
     Dosage: 100 ML, PRN
     Route: 061
     Dates: start: 20110316
  21. KETOROLAC TROMETHAMINE [Concomitant]
     Indication: ABDOMINAL PAIN
     Dosage: 30 MG, QD
     Route: 042
     Dates: start: 20110202, end: 20110202
  22. MAGNESIUM OXIDE [Concomitant]
     Dosage: 500 MG, TID
     Route: 048
     Dates: start: 20110207, end: 20110213
  23. MAGNESIUM OXIDE [Concomitant]
     Dosage: 500 MG, TID
     Route: 048
     Dates: start: 20110207, end: 20110216
  24. ALIMENTARY TRACT AND METABOLISM [Concomitant]
     Dosage: 1C TID
     Dates: start: 20110208, end: 20110223
  25. URSACOL [Concomitant]
     Dosage: 100 MG, TID
     Route: 048
     Dates: start: 20110208
  26. TAGAMET [Concomitant]
     Indication: ABDOMINAL PAIN
     Dosage: 200 MG
     Route: 042
     Dates: start: 20110417, end: 20110417
  27. ALPRAZOLAM [Concomitant]
     Indication: INSOMNIA
     Dosage: 0.25 MG, QD
     Route: 048
     Dates: start: 20110223, end: 20110225
  28. EUPATILIN [Concomitant]
     Dosage: 60 MG, TID
     Route: 048
     Dates: start: 20110201, end: 20110201
  29. MEK INHIBITOR (DIHYDROXYPROP-DIFLU-METHOXYPHEN-CYCLOPROPA-SULFAMI) [Suspect]
     Indication: HEPATIC NEOPLASM MALIGNANT
     Dosage: 50 MG, BID
     Route: 048
     Dates: start: 20110216, end: 20110418
  30. SORAFENIB (RAF KINASE INHIBITOR) [Suspect]
     Indication: HEPATIC NEOPLASM MALIGNANT
     Dosage: 200 MG QAM, 400 MG QPM
     Route: 048
     Dates: start: 20110216, end: 20110308
  31. OXYCONTIN [Concomitant]
     Indication: ABDOMINAL PAIN
     Dosage: 10 MG, TID
     Route: 048
     Dates: start: 20110330
  32. PANCREATIC ENZYMES [Concomitant]
     Indication: DIARRHOEA
     Dosage: 457.7 MG, TID
     Route: 048
     Dates: start: 20110330
  33. ANALGESICS [Concomitant]
     Indication: ABDOMINAL PAIN
     Dosage: 2C, TID
     Route: 048
     Dates: start: 20110207, end: 20110213
  34. OXYCODONE HCL [Concomitant]
     Dosage: 5 MG, QD
     Route: 048
     Dates: start: 20110214
  35. CEFPIRAN [Concomitant]
     Indication: PYREXIA
     Dosage: 1 G, BID
     Route: 042
     Dates: start: 20110209, end: 20110214
  36. ELECTROLYTE SOLUTIONS [Concomitant]
     Dosage: 0.2 ML, QD
     Route: 042
     Dates: start: 20110209, end: 20110209
  37. NAXEN [Concomitant]
     Indication: ABDOMINAL PAIN
     Dosage: 500 MG, BID
     Route: 048
     Dates: start: 20110210, end: 20110219
  38. SORAFENIB (RAF KINASE INHIBITOR) [Suspect]
     Dosage: 400 MG, BID
     Route: 048
     Dates: start: 20110308, end: 20110418
  39. ALIMENTARY TRACT AND METABOLISM [Concomitant]
     Indication: ASPARTATE AMINOTRANSFERASE INCREASED
     Dosage: 2C,TID
     Dates: start: 20110207
  40. MEGESTROL ACETATE [Concomitant]
     Indication: DECREASED APPETITE
     Dosage: 10 ML, QD
     Route: 048
     Dates: start: 20110208, end: 20110209
  41. POFOL [Concomitant]
     Dosage: 120 MG, QD
     Route: 042
     Dates: start: 20110210, end: 20110210
  42. EUPATILIN [Concomitant]
     Dosage: 60 MG, TID
     Route: 048
     Dates: start: 20110330
  43. ZOLPIDEM [Concomitant]
     Dosage: 10 MG, PRN
     Route: 048
     Dates: start: 20110330
  44. HYOSCINE BUTYLBROMIDE [Concomitant]
     Indication: DIARRHOEA
     Dosage: 20 MG, QD
     Route: 042
     Dates: start: 20110417, end: 20110417

REACTIONS (1)
  - PNEUMATOSIS INTESTINALIS [None]
